FAERS Safety Report 6495520-2 (Version None)
Quarter: 2009Q4

REPORT INFORMATION
  Report Type: 
  Country: None (occurrence: None)
  Receive Date: 20091214
  Receipt Date: 20090706
  Transmission Date: 20100525
  Serious: No
  Sender: FDA-Public Use
  Company Number: US-BRISTOL-MYERS SQUIBB COMPANY-14690606

PATIENT
  Age: 65 Year
  Sex: Female
  Weight: 90 kg

DRUGS (7)
  1. ABILIFY [Suspect]
     Indication: MENTAL DISORDER
  2. DITROPAN [Concomitant]
  3. SEROQUEL [Concomitant]
  4. STALEVO 100 [Concomitant]
  5. SINEMET [Concomitant]
  6. ZOCOR [Concomitant]
  7. FLUDROCORTISONE [Concomitant]

REACTIONS (3)
  - BLOOD PRESSURE DECREASED [None]
  - FEELING HOT [None]
  - LOSS OF CONSCIOUSNESS [None]
